FAERS Safety Report 11183762 (Version 1)
Quarter: 2015Q2

REPORT INFORMATION
  Report Type: Spontaneous
  Country: US (occurrence: US)
  Receive Date: 20150612
  Receipt Date: 20150612
  Transmission Date: 20150821
  Serious: Yes (Other)
  Sender: FDA-Public Use
  Company Number: US-BEH-2015051589

PATIENT
  Age: 53 Year
  Sex: Female

DRUGS (1)
  1. PRIVIGEN [Suspect]
     Active Substance: HUMAN IMMUNOGLOBULIN G
     Indication: PRODUCT USED FOR UNKNOWN INDICATION

REACTIONS (6)
  - Tongue dysplasia [Unknown]
  - Compression fracture [Unknown]
  - Candida infection [Unknown]
  - Abasia [Unknown]
  - Sinus operation [Unknown]
  - Tooth extraction [Unknown]

NARRATIVE: CASE EVENT DATE: 2014
